FAERS Safety Report 25101732 (Version 1)
Quarter: 2025Q1

REPORT INFORMATION
  Report Type: Spontaneous
  Country: US (occurrence: None)
  Receive Date: 20250319
  Receipt Date: 20250319
  Transmission Date: 20250408
  Serious: Yes (Life-Threatening, Hospitalization, Other)
  Sender: FDA-CTU
  Company Number: None

PATIENT
  Age: 33 Year
  Sex: Male
  Weight: 85.7 kg

DRUGS (2)
  1. DIETARY SUPPLEMENT [Suspect]
     Active Substance: DIETARY SUPPLEMENT
     Indication: Product used for unknown indication
     Dosage: 3 CAPLET EVERYDAY PO
     Route: 048
  2. CREATINE [Concomitant]
     Active Substance: CREATINE

REACTIONS (5)
  - Hypoaesthesia [None]
  - Dysstasia [None]
  - Fall [None]
  - Hemiparesis [None]
  - Headache [None]

NARRATIVE: CASE EVENT DATE: 20060322
